FAERS Safety Report 5755281-9 (Version None)
Quarter: 2008Q2

REPORT INFORMATION
  Report Type: 
  Country: None (occurrence: None)
  Receive Date: 20080602
  Receipt Date: 20080522
  Transmission Date: 20081010
  Serious: Yes (Hospitalization, Other)
  Sender: FDA-Public Use
  Company Number: US-AMGEN-QUU276576

PATIENT
  Sex: Female

DRUGS (13)
  1. ENBREL [Suspect]
     Indication: RHEUMATOID ARTHRITIS
     Route: 058
     Dates: start: 20041125
  2. ENBREL [Suspect]
     Indication: PSORIATIC ARTHROPATHY
  3. FOSAMAX [Concomitant]
  4. MOBIC [Concomitant]
  5. ASPIRIN [Concomitant]
  6. CELEXA [Concomitant]
  7. FLONASE [Concomitant]
  8. IMIPRAMINE [Concomitant]
  9. NEXIUM [Concomitant]
  10. SYNTHROID [Concomitant]
  11. VITAMIN D [Concomitant]
  12. FORTEO [Concomitant]
  13. CALCIUM [Concomitant]

REACTIONS (7)
  - ARTHRALGIA [None]
  - FIBULA FRACTURE [None]
  - JOINT DISLOCATION [None]
  - OPEN FRACTURE [None]
  - OSTEOPENIA [None]
  - OSTEOPOROSIS [None]
  - PSORIASIS [None]
